FAERS Safety Report 5750849-8 (Version None)
Quarter: 2008Q2

REPORT INFORMATION
  Report Type: 
  Country: None (occurrence: None)
  Receive Date: 20080528
  Receipt Date: 20080521
  Transmission Date: 20081010
  Serious: Yes (Other)
  Sender: FDA-Public Use
  Company Number: B0521307A

PATIENT
  Age: 33 Year
  Sex: Female

DRUGS (1)
  1. AUGMENTIN '125' [Suspect]
     Indication: CHOLECYSTECTOMY
     Dosage: 375MG UNKNOWN
     Route: 048
     Dates: start: 20080301, end: 20080301

REACTIONS (4)
  - ALANINE AMINOTRANSFERASE INCREASED [None]
  - HEPATIC FAILURE [None]
  - MALAISE [None]
  - RENAL FAILURE [None]
